FAERS Safety Report 6530880-5 (Version None)
Quarter: 2010Q1

REPORT INFORMATION
  Report Type: 
  Country: None (occurrence: None)
  Receive Date: 20100108
  Receipt Date: 20090505
  Transmission Date: 20100710
  Serious: No
  Sender: FDA-Public Use
  Company Number: A0782556A

PATIENT
  Age: 71 Year
  Sex: Female

DRUGS (9)
  1. LOVAZA [Suspect]
     Dosage: 2CAP TWICE PER DAY
     Route: 048
     Dates: start: 20090410, end: 20090504
  2. PLAVIX [Concomitant]
  3. DIOVAN HCT [Concomitant]
  4. CALCIUM + D [Concomitant]
  5. CENTRUM SILVER [Concomitant]
  6. TYLENOL (CAPLET) [Concomitant]
  7. FOSAMAX [Concomitant]
  8. VERELAN PM [Concomitant]
  9. ASPIRIN [Concomitant]

REACTIONS (13)
  - ABNORMAL FAECES [None]
  - BACK PAIN [None]
  - BLOOD CHOLESTEROL INCREASED [None]
  - BLOOD PRESSURE FLUCTUATION [None]
  - BLOOD PRESSURE INCREASED [None]
  - BLOOD TRIGLYCERIDES INCREASED [None]
  - BURNING SENSATION [None]
  - DRUG INEFFECTIVE [None]
  - FLATULENCE [None]
  - MUSCLE SPASMS [None]
  - ORAL PAIN [None]
  - PRURITUS [None]
  - URINE ODOUR ABNORMAL [None]
